FAERS Safety Report 24839875 (Version 1)
Quarter: 2025Q1

REPORT INFORMATION
  Report Type: Spontaneous
  Country: US (occurrence: None)
  Receive Date: 20250113
  Receipt Date: 20250113
  Transmission Date: 20250408
  Serious: Yes (Other)
  Sender: FDA-CTU
  Company Number: None

PATIENT
  Age: 45 Year
  Sex: Female

DRUGS (1)
  1. EMGALITY [Suspect]
     Active Substance: GALCANEZUMAB-GNLM
     Indication: Migraine
     Dosage: OTHER STRENGTH : 120 MG MILLILTRES;?OTHER QUANTITY : 120 MG OR 1 ML;?FREQUENCY : MONTHLY;?
     Route: 058
     Dates: start: 20220906

REACTIONS (1)
  - Breast cancer [None]
